FAERS Safety Report 16321932 (Version 3)
Quarter: 2019Q3

REPORT INFORMATION
  Report Type: Spontaneous
  Country: US (occurrence: US)
  Receive Date: 20190516
  Receipt Date: 20190718
  Transmission Date: 20191004
  Serious: Yes (Other)
  Sender: FDA-Public Use
  Company Number: US-MALLINCKRODT-T201903714

PATIENT
  Sex: Female
  Weight: 72 kg

DRUGS (3)
  1. H.P. ACTHAR [Suspect]
     Active Substance: CORTICOTROPIN
     Indication: RHEUMATOID ARTHRITIS
     Dosage: 80 UNITS/1 ML, TWO TIMES A WEEK AS DIRECT
     Route: 058
     Dates: start: 201902
  2. H.P. ACTHAR [Suspect]
     Active Substance: CORTICOTROPIN
     Indication: OSTEOARTHRITIS
  3. H.P. ACTHAR [Suspect]
     Active Substance: CORTICOTROPIN
     Indication: SJOGREN^S SYNDROME

REACTIONS (7)
  - Rheumatoid arthritis [Unknown]
  - Acne [Unknown]
  - Condition aggravated [Unknown]
  - Sjogren^s syndrome [Unknown]
  - Osteoarthritis [Unknown]
  - Infection [Unknown]
  - Needle issue [Unknown]

NARRATIVE: CASE EVENT DATE: 2019
